FAERS Safety Report 8169792-2 (Version None)
Quarter: 2012Q1

REPORT INFORMATION
  Report Type: 
  Country: None (occurrence: None)
  Receive Date: 20120228
  Receipt Date: 20120216
  Transmission Date: 20120608
  Serious: Yes (Other)
  Sender: FDA-Public Use
  Company Number: CH-BRISTOL-MYERS SQUIBB COMPANY-16409476

PATIENT
  Age: 85 Year
  Sex: Male
  Weight: 68 kg

DRUGS (4)
  1. ASPIRIN [Suspect]
     Dosage: 1 DF: 1 TABS ASPIRIN CARDIO 100 FILM COATED TABS
     Route: 048
     Dates: start: 20010101
  2. XALATAN [Concomitant]
     Dosage: 1 DF: 1 GTT DROPS
     Route: 047
  3. CAMPHOR [Concomitant]
     Route: 048
     Dates: start: 20111101
  4. IRBESARTAN + HYDROCHLOROTHIAZIDE [Suspect]
     Dosage: 1 DF: 300/25 UNIT NOS
     Route: 048
     Dates: start: 20010101

REACTIONS (3)
  - DECREASED APPETITE [None]
  - DYSGEUSIA [None]
  - WEIGHT DECREASED [None]
